FAERS Safety Report 20868452 (Version 1)
Quarter: 2022Q2

REPORT INFORMATION
  Report Type: Spontaneous
  Country: RU (occurrence: None)
  Receive Date: 20220524
  Receipt Date: 20220524
  Transmission Date: 20220721
  Serious: Yes (Other)
  Sender: FDA-Public Use
  Company Number: RU-ROCHE-3098291

PATIENT
  Age: 64 Year
  Sex: Female

DRUGS (5)
  1. TRASTUZUMAB [Suspect]
     Active Substance: TRASTUZUMAB
     Indication: Breast cancer
     Dosage: 8 MG/KG LOADING DOSE ON DAY 1 AFTER THAT 6 MG/KG, TOTAL 18 ADMINISTRATIONS
     Route: 065
     Dates: end: 201904
  2. ADO-TRASTUZUMAB EMTANSINE [Suspect]
     Active Substance: ADO-TRASTUZUMAB EMTANSINE
     Indication: Breast cancer
     Dosage: 1ST LINE THERAPY
     Route: 065
     Dates: start: 201907, end: 202107
  3. ADO-TRASTUZUMAB EMTANSINE [Suspect]
     Active Substance: ADO-TRASTUZUMAB EMTANSINE
     Dosage: STARTING CYCLE 36 DOSE REDUCED BY 1 STEP, DUE TO INCREASE IN HEPATIC TOXICITY TO GRADE II, AT PRESEN
     Route: 065
     Dates: start: 202107, end: 202107
  4. DOXORUBICIN [Suspect]
     Active Substance: DOXORUBICIN
     Indication: Breast cancer
     Dosage: 4 CYCLES
     Route: 065
     Dates: start: 201712, end: 201806
  5. CYCLOPHOSPHAMIDE [Suspect]
     Active Substance: CYCLOPHOSPHAMIDE
     Indication: Breast cancer
     Dosage: 4 CYCLES
     Route: 065
     Dates: start: 201712, end: 201806

REACTIONS (2)
  - Disease progression [Unknown]
  - Hepatotoxicity [Unknown]
